FAERS Safety Report 4919216-0 (Version None)
Quarter: 2006Q1

REPORT INFORMATION
  Report Type: 
  Country: None (occurrence: None)
  Receive Date: 20060222
  Receipt Date: 20060213
  Transmission Date: 20060701
  Serious: Yes (Death)
  Sender: FDA-Public Use
  Company Number: HR-NOVOPROD-250848

PATIENT
  Sex: Male
  Weight: 4 kg

DRUGS (8)
  1. NOVOSEVEN [Suspect]
     Indication: HAEMORRHAGE
     Dosage: 120 UG/KG, SINGLE
     Dates: start: 20060208, end: 20060208
  2. NOVOSEVEN [Suspect]
     Dosage: 90 UG/KG, SINGLE
     Dates: start: 20060208, end: 20060208
  3. NOVOSEVEN [Suspect]
     Dosage: 90 UG/KG, SINGLE
     Dates: start: 20060208, end: 20060208
  4. GARAMYCIN [Concomitant]
     Route: 042
     Dates: start: 20060208, end: 20060208
  5. AMPICILLIN SODIUM [Concomitant]
     Route: 042
     Dates: start: 20060208, end: 20060208
  6. EPINEPHRINE [Concomitant]
     Route: 042
     Dates: start: 20060208, end: 20060208
  7. ATROPINE [Concomitant]
     Route: 042
     Dates: start: 20060208, end: 20060208
  8. VITAMIN K [Concomitant]
     Route: 042
     Dates: start: 20060208, end: 20060208

REACTIONS (1)
  - MULTI-ORGAN FAILURE [None]
